FAERS Safety Report 9292831 (Version 1)
Quarter: 2013Q2

REPORT INFORMATION
  Report Type: Spontaneous
  Country: US (occurrence: None)
  Receive Date: 20130515
  Receipt Date: 20130515
  Transmission Date: 20140414
  Serious: Yes (Hospitalization)
  Sender: FDA-Public Use
  Company Number: None

PATIENT
  Age: 84 Year
  Sex: Female
  Weight: 58.97 kg

DRUGS (3)
  1. NEURONTIN [Suspect]
     Indication: STRESS
     Dosage: 1 CAPSULE
     Route: 048
  2. LOSARTAN POTASSIUM [Concomitant]
  3. ABILIFY [Concomitant]

REACTIONS (3)
  - Dizziness [None]
  - Diplopia [None]
  - Skin discolouration [None]
